FAERS Safety Report 10120790 (Version 1)
Quarter: 2014Q2

REPORT INFORMATION
  Report Type: Report from Study
  Country: US (occurrence: US)
  Receive Date: 20140425
  Receipt Date: 20140425
  Transmission Date: 20141212
  Serious: Yes (Hospitalization)
  Sender: FDA-Public Use
  Company Number: US-BRISTOL-MYERS SQUIBB COMPANY-20650750

PATIENT
  Age: 24 Year
  Sex: Male
  Weight: 90.4 kg

DRUGS (1)
  1. IPILIMUMAB [Suspect]
     Indication: MALIGNANT MELANOMA
     Dosage: OVER 90MINS,Q3WEEKSX4DOSES?Q12 WEEKS ON WEEKS24,36,48,60.?TOT DOSE 271MG,RECENT DOSE 09APR14
     Route: 042
     Dates: start: 20140409

REACTIONS (2)
  - Soft tissue infection [Not Recovered/Not Resolved]
  - Pain of skin [Not Recovered/Not Resolved]
